FAERS Safety Report 21636126 (Version 1)
Quarter: 2022Q4

REPORT INFORMATION
  Report Type: Spontaneous
  Country: AU (occurrence: None)
  Receive Date: 20221123
  Receipt Date: 20221123
  Transmission Date: 20230113
  Serious: Yes (Other)
  Sender: FDA-Public Use
  Company Number: 2022A382635

PATIENT
  Age: 23466 Day
  Sex: Male

DRUGS (1)
  1. BYETTA [Suspect]
     Active Substance: EXENATIDE
     Indication: Diabetes mellitus
     Route: 058
     Dates: start: 20221108, end: 20221114

REACTIONS (1)
  - Retinal detachment [Not Recovered/Not Resolved]

NARRATIVE: CASE EVENT DATE: 20221108
